FAERS Safety Report 12332588 (Version 1)
Quarter: 2016Q2

REPORT INFORMATION
  Report Type: Spontaneous
  Country: US (occurrence: US)
  Receive Date: 20160504
  Receipt Date: 20160504
  Transmission Date: 20160815
  Serious: No
  Sender: FDA-Public Use
  Company Number: US-ROCHE-1712990

PATIENT
  Age: 63 Year
  Sex: Female

DRUGS (1)
  1. ESBRIET [Suspect]
     Active Substance: PIRFENIDONE
     Indication: IDIOPATHIC PULMONARY FIBROSIS
     Route: 048
     Dates: start: 20150730, end: 20160214

REACTIONS (10)
  - Fatigue [Unknown]
  - Arthralgia [Unknown]
  - Decreased appetite [Unknown]
  - Headache [Unknown]
  - Abdominal distension [Unknown]
  - Myalgia [Unknown]
  - Insomnia [Unknown]
  - Hot flush [Unknown]
  - Hyperhidrosis [Unknown]
  - Dysuria [Unknown]

NARRATIVE: CASE EVENT DATE: 20160216
